FAERS Safety Report 9450826 (Version 2)
Quarter: 2013Q3

REPORT INFORMATION
  Report Type: Spontaneous
  Country: IT (occurrence: IT)
  Receive Date: 20130809
  Receipt Date: 20130930
  Transmission Date: 20140515
  Serious: Yes (Hospitalization)
  Sender: FDA-Public Use
  Company Number: IT-PFIZER INC-2013230385

PATIENT
  Age: 52 Year
  Sex: Female

DRUGS (7)
  1. FRONTAL [Suspect]
     Indication: DEPRESSION
     Dosage: 0.5 MG 1/2 TABLET X2/DAY
     Route: 048
  2. FRONTAL [Suspect]
     Dosage: 3 MG, UNK
     Route: 048
     Dates: start: 20130630, end: 20130630
  3. EFEXOR ER [Suspect]
     Indication: DEPRESSION
     Dosage: 75 MG 1 TABLET /DAY
     Route: 048
  4. EFEXOR ER [Suspect]
     Dosage: 900 MG, UNK
     Route: 048
     Dates: start: 20130630, end: 20130630
  5. DENIBAN [Concomitant]
     Indication: DEPRESSION
     Dosage: 50 MG, UNK
     Route: 048
     Dates: start: 20130601, end: 20130630
  6. STILNOX [Concomitant]
     Indication: INSOMNIA
     Dosage: 5 MG, UNK
     Route: 048
     Dates: start: 20130601, end: 20130630
  7. EUTIMIL [Concomitant]
     Indication: DEPRESSION
     Dosage: 10 MG, UNK
     Route: 048
     Dates: start: 20130601, end: 20130630

REACTIONS (4)
  - Intentional self-injury [Recovering/Resolving]
  - Somnolence [Recovering/Resolving]
  - Bradyphrenia [Recovering/Resolving]
  - Drug abuse [Recovering/Resolving]
